FAERS Safety Report 9592026 (Version 1)
Quarter: 2013Q4

REPORT INFORMATION
  Report Type: Spontaneous
  Country: US (occurrence: US)
  Receive Date: 20131004
  Receipt Date: 20131004
  Transmission Date: 20140711
  Serious: Yes (Other)
  Sender: FDA-Public Use
  Company Number: US-BIOGENIDEC-2013BI089629

PATIENT
  Age: 47 Year
  Sex: Male

DRUGS (3)
  1. AVONEX [Suspect]
     Indication: RELAPSING-REMITTING MULTIPLE SCLEROSIS
     Route: 030
  2. GLATIRAMER ACETATE [Concomitant]
  3. FINGOLIMOD [Concomitant]

REACTIONS (3)
  - Cardiac failure congestive [Unknown]
  - Drug intolerance [Recovered/Resolved]
  - Multiple sclerosis relapse [Recovered/Resolved]
